FAERS Safety Report 13700818 (Version 2)
Quarter: 2017Q3

REPORT INFORMATION
  Report Type: Spontaneous
  Country: US (occurrence: US)
  Receive Date: 20170629
  Receipt Date: 20170705
  Transmission Date: 20171127
  Serious: No
  Sender: FDA-Public Use
  Company Number: US-PFIZER INC-2017281553

PATIENT
  Age: 60 Year
  Sex: Female
  Weight: 68.4 kg

DRUGS (5)
  1. CITALOPRAM [Concomitant]
     Active Substance: CITALOPRAM HYDROBROMIDE
     Indication: DEPRESSION
     Dosage: 20 MG EVERY NIGHT
  2. LYRICA [Suspect]
     Active Substance: PREGABALIN
     Indication: FIBROMYALGIA
     Dosage: 75MG TWO TIMES A DAY, MORNING AND EVENING
  3. KLONOPIN [Concomitant]
     Active Substance: CLONAZEPAM
     Indication: ANXIETY
     Dosage: 1 MG, 2X/DAY
  4. SEROQUEL [Concomitant]
     Active Substance: QUETIAPINE FUMARATE
     Indication: BIPOLAR DISORDER
     Dosage: 200MG EVERY NIGHT
  5. NORCO [Concomitant]
     Active Substance: ACETAMINOPHEN\HYDROCODONE BITARTRATE
     Indication: PAIN
     Dosage: 10 MG, 3X/DAY [EVERY 8 HOURS]

REACTIONS (9)
  - Mental disorder [Unknown]
  - Malaise [Unknown]
  - Hallucination [Unknown]
  - Condition aggravated [Unknown]
  - Insomnia [Unknown]
  - Depression [Unknown]
  - Vision blurred [Unknown]
  - Myalgia [Unknown]
  - Balance disorder [Unknown]
